FAERS Safety Report 4600713-2 (Version None)
Quarter: 2005Q1

REPORT INFORMATION
  Report Type: 
  Country: None (occurrence: None)
  Receive Date: 20050307
  Receipt Date: 20050303
  Transmission Date: 20050727
  Serious: Yes (Life-Threatening, Hospitalization, Disabling)
  Sender: FDA-Public Use
  Company Number: US-MERCK-0503USA00501

PATIENT
  Age: 75 Year
  Sex: Female

DRUGS (5)
  1. FOSAMAX [Suspect]
     Indication: OSTEOPOROSIS
     Route: 048
     Dates: start: 20020101, end: 20040101
  2. FOSAMAX [Suspect]
     Indication: SPINAL FRACTURE
     Route: 048
     Dates: start: 20020101, end: 20040101
  3. BEXTRA [Concomitant]
     Route: 065
  4. VERAPAMIL [Concomitant]
     Route: 065
  5. METHADONE HYDROCHLORIDE [Concomitant]
     Route: 065

REACTIONS (1)
  - GASTRIC ULCER HAEMORRHAGE [None]
